FAERS Safety Report 6181374-0 (Version None)
Quarter: 2009Q2

REPORT INFORMATION
  Report Type: 
  Country: None (occurrence: None)
  Receive Date: 20090506
  Receipt Date: 20090430
  Transmission Date: 20091009
  Serious: Yes (Hospitalization)
  Sender: FDA-Public Use
  Company Number: US-ELI_LILLY_AND_COMPANY-US200904007296

PATIENT
  Sex: Male

DRUGS (5)
  1. HUMALOG [Suspect]
     Indication: TYPE 1 DIABETES MELLITUS
     Dosage: UNK, AS NEEDED
  2. HUMALOG [Suspect]
  3. LANTUS [Concomitant]
  4. DIOVAN [Concomitant]
  5. LIPITOR [Concomitant]

REACTIONS (2)
  - DIVERTICULITIS [None]
  - INTERCEPTED DRUG DISPENSING ERROR [None]
